FAERS Safety Report 5576722-6 (Version None)
Quarter: 2007Q4

REPORT INFORMATION
  Report Type: 
  Country: None (occurrence: None)
  Receive Date: 20071228
  Receipt Date: 20071217
  Transmission Date: 20080405
  Serious: Yes (Hospitalization)
  Sender: FDA-Public Use
  Company Number: US-AMGEN-QUU257153

PATIENT
  Age: 72 Year
  Sex: Male

DRUGS (7)
  1. ARANESP [Suspect]
     Indication: RENAL FAILURE CHRONIC
     Dates: start: 20071001
  2. LASIX [Concomitant]
  3. ALLOPURINOL [Concomitant]
  4. REMERON [Concomitant]
  5. PAXIL [Concomitant]
  6. BUMEX [Concomitant]
  7. CORTICOSTEROID NOS [Concomitant]

REACTIONS (3)
  - CHRONIC OBSTRUCTIVE PULMONARY DISEASE [None]
  - EOSINOPHILIA [None]
  - RASH [None]
